FAERS Safety Report 6145550-5 (Version None)
Quarter: 2009Q2

REPORT INFORMATION
  Report Type: 
  Country: None (occurrence: None)
  Receive Date: 20090402
  Receipt Date: 20090320
  Transmission Date: 20091009
  Serious: Yes (Other)
  Sender: FDA-Public Use
  Company Number: 2009000870

PATIENT
  Age: 37 Year
  Sex: Female

DRUGS (1)
  1. TARCEVA [Suspect]
     Indication: LUNG NEOPLASM MALIGNANT
     Dosage: (150 MG), ORAL
     Route: 048
     Dates: start: 20081101

REACTIONS (2)
  - MIGRAINE [None]
  - VISUAL FIELD DEFECT [None]
